FAERS Safety Report 9023770 (Version 1)
Quarter: 2013Q1

REPORT INFORMATION
  Report Type: Spontaneous
  Country: US (occurrence: US)
  Receive Date: 20130121
  Receipt Date: 20130121
  Transmission Date: 20140127
  Serious: No
  Sender: FDA-Public Use
  Company Number: US-PFIZER INC-2013023181

PATIENT
  Age: 72 Year
  Sex: Male
  Weight: 82.5 kg

DRUGS (3)
  1. CHANTIX [Suspect]
     Indication: SMOKING CESSATION THERAPY
     Dosage: 0.5 MG, 1X/DAY
     Route: 048
  2. CHANTIX [Suspect]
     Dosage: UNK
     Route: 048
     Dates: end: 201211
  3. PERCOCET [Concomitant]
     Dosage: UNK

REACTIONS (4)
  - Pain [Unknown]
  - Arthropathy [Unknown]
  - Arthritis [Unknown]
  - Joint swelling [Unknown]
